FAERS Safety Report 4614394-5 (Version None)
Quarter: 2005Q1

REPORT INFORMATION
  Report Type: 
  Country: None (occurrence: None)
  Receive Date: 20050321
  Receipt Date: 20050314
  Transmission Date: 20050727
  Serious: Yes (Other)
  Sender: FDA-Public Use
  Company Number: US-MERCK-0503USA02804

PATIENT
  Age: 50 Year
  Sex: Male

DRUGS (6)
  1. CRIXIVAN [Suspect]
     Indication: HIV INFECTION
     Route: 048
  2. ZERIT [Concomitant]
     Route: 065
  3. PRAVACHOL [Concomitant]
     Route: 065
  4. RITONAVIR [Concomitant]
     Route: 065
  5. VIREAD [Concomitant]
     Route: 065
  6. T-20 [Concomitant]
     Route: 065

REACTIONS (5)
  - ALANINE AMINOTRANSFERASE INCREASED [None]
  - ASPARTATE AMINOTRANSFERASE INCREASED [None]
  - BLOOD CREATINE PHOSPHOKINASE INCREASED [None]
  - BLOOD LACTIC ACID INCREASED [None]
  - JAUNDICE [None]
